FAERS Safety Report 9418299 (Version 1)
Quarter: 2013Q3

REPORT INFORMATION
  Report Type: Spontaneous
  Country: CA (occurrence: CA)
  Receive Date: 20130725
  Receipt Date: 20130725
  Transmission Date: 20140515
  Serious: Yes (Other)
  Sender: FDA-Public Use
  Company Number: CA-AMGEN-CANSP2013051452

PATIENT
  Age: 58 Year
  Sex: Female

DRUGS (4)
  1. NEUPOGEN [Suspect]
     Indication: PRODUCT USED FOR UNKNOWN INDICATION
     Dosage: 1ML/300MCG, UNK
     Route: 065
     Dates: start: 20130626, end: 201306
  2. METFORMIN [Concomitant]
     Dosage: UNK
  3. AGGRENOX [Concomitant]
     Dosage: UNK
  4. ZANTAC [Concomitant]
     Dosage: 150 MG, 2 X PER DAY

REACTIONS (7)
  - Back pain [Recovered/Resolved]
  - Pain [Recovered/Resolved]
  - Mobility decreased [Recovered/Resolved]
  - Paralysis [Recovered/Resolved]
  - Diabetes mellitus inadequate control [Unknown]
  - Dyspepsia [Unknown]
  - Bone pain [Recovered/Resolved]
